FAERS Safety Report 16470556 (Version 4)
Quarter: 2019Q3

REPORT INFORMATION
  Report Type: Spontaneous
  Country: US (occurrence: US)
  Receive Date: 20190624
  Receipt Date: 20190820
  Transmission Date: 20191004
  Serious: Yes (Death, Hospitalization)
  Sender: FDA-Public Use
  Company Number: US-ACTELION-A-NJ2019-192064

PATIENT
  Age: 70 Year
  Sex: Male
  Weight: 106.58 kg

DRUGS (5)
  1. UPTRAVI [Suspect]
     Active Substance: SELEXIPAG
     Indication: PULMONARY ARTERIAL HYPERTENSION
     Dosage: 1200 MCG, BID
     Route: 048
  2. SILDENAFIL CITRATE. [Concomitant]
     Active Substance: SILDENAFIL CITRATE
  3. TYVASO [Concomitant]
     Active Substance: TREPROSTINIL
  4. VELETRI [Suspect]
     Active Substance: EPOPROSTENOL
     Indication: PULMONARY ARTERIAL HYPERTENSION
     Dosage: 18.87 NG/KG, PER MIN
     Route: 042
  5. OPSUMIT [Concomitant]
     Active Substance: MACITENTAN
     Indication: PULMONARY ARTERIAL HYPERTENSION
     Route: 048

REACTIONS (14)
  - Adrenal insufficiency [Unknown]
  - Arthralgia [Unknown]
  - Therapy change [Unknown]
  - Neck pain [Unknown]
  - Right ventricular failure [Fatal]
  - Renal impairment [Unknown]
  - Myalgia [Unknown]
  - Musculoskeletal pain [Unknown]
  - Headache [Unknown]
  - Acute kidney injury [Unknown]
  - Hypoxia [Unknown]
  - Pain in jaw [Unknown]
  - Pain in extremity [Unknown]
  - Nausea [Unknown]

NARRATIVE: CASE EVENT DATE: 20190610
